FAERS Safety Report 5365740-9 (Version None)
Quarter: 2007Q2

REPORT INFORMATION
  Report Type: 
  Country: None (occurrence: None)
  Receive Date: 20070621
  Receipt Date: 20070613
  Transmission Date: 20071010
  Serious: Yes (Death, Other)
  Sender: FDA-Public Use
  Company Number: UG-BOEHRINGER INGELHEIM PHARMACEUTICALS, INC.-2007-DE-03459GD

PATIENT

DRUGS (1)
  1. TRIOMUNE [Suspect]
     Indication: HIV INFECTION
     Dosage: 62 % OF 97 PATIENTS INITIATED TREATMENT USING RAMP-UP DOSES OF 200 MG OF NEVIRAPINE
     Route: 048

REACTIONS (7)
  - AIDS RELATED COMPLICATION [None]
  - COUGH [None]
  - DEATH [None]
  - HEPATOTOXICITY [None]
  - NEUROPATHY PERIPHERAL [None]
  - RASH [None]
  - TUBERCULOSIS [None]
